FAERS Safety Report 4546789-2 (Version None)
Quarter: 2005Q1

REPORT INFORMATION
  Report Type: 
  Country: None (occurrence: None)
  Receive Date: 20050105
  Receipt Date: 20041227
  Transmission Date: 20050727
  Serious: Yes (Death)
  Sender: FDA-Public Use
  Company Number: 200413455GDS

PATIENT
  Age: 44 Year
  Sex: Male

DRUGS (1)
  1. LEVITRA [Suspect]
     Indication: ERECTILE DYSFUNCTION
     Dosage: 10 MG, ONCE, ORAL
     Route: 048

REACTIONS (4)
  - BLOOD CHOLESTEROL INCREASED [None]
  - BLOOD LACTATE DEHYDROGENASE INCREASED [None]
  - ELECTROCARDIOGRAM QT INTERVAL ABNORMAL [None]
  - MYOCARDIAL INFARCTION [None]
